FAERS Safety Report 4405666-8 (Version None)
Quarter: 2004Q3

REPORT INFORMATION
  Report Type: 
  Country: None (occurrence: None)
  Receive Date: 20040716
  Receipt Date: 20040706
  Transmission Date: 20050211
  Serious: Yes (Other)
  Sender: FDA-Public Use
  Company Number: 2004039100

PATIENT
  Age: 55 Year
  Sex: Female

DRUGS (3)
  1. RELPAX [Suspect]
     Indication: MIGRAINE
     Dosage: (90 MG, PRN),ORAL
     Route: 048
     Dates: start: 20031101
  2. CONJUGATED ESTROGENS [Concomitant]
  3. CAFERGOT [Concomitant]

REACTIONS (1)
  - COLITIS ISCHAEMIC [None]
